FAERS Safety Report 20951282 (Version 1)
Quarter: 2022Q2

REPORT INFORMATION
  Report Type: Spontaneous
  Country: CO (occurrence: CO)
  Receive Date: 20220613
  Receipt Date: 20220613
  Transmission Date: 20220721
  Serious: Yes (Hospitalization)
  Sender: FDA-Public Use
  Company Number: CO-PFIZER INC-202200783990

PATIENT
  Age: 51 Year
  Sex: Male

DRUGS (2)
  1. AMPICILLIN SODIUM\SULBACTAM SODIUM [Suspect]
     Active Substance: AMPICILLIN SODIUM\SULBACTAM SODIUM
     Indication: Pneumonia
     Route: 048
  2. CLARITHROMYCIN [Suspect]
     Active Substance: CLARITHROMYCIN
     Route: 048

REACTIONS (19)
  - Drug ineffective [Recovered/Resolved]
  - Pyrexia [Unknown]
  - Hyperhidrosis [Unknown]
  - Chest pain [Unknown]
  - Arthralgia [Unknown]
  - Breath sounds abnormal [Unknown]
  - Aortic valve disease [Unknown]
  - Arthropathy [Unknown]
  - Joint range of motion decreased [Unknown]
  - Lung consolidation [Unknown]
  - Aspiration joint [Unknown]
  - Burkholderia test positive [Unknown]
  - Inflammation [Unknown]
  - Subcutaneous abscess [Unknown]
  - Asthenia [Unknown]
  - Scrotal pain [Unknown]
  - Testicular pain [Unknown]
  - Hydrocele [Unknown]
  - Orchitis [Unknown]
